FAERS Safety Report 7600846-2 (Version None)
Quarter: 2011Q3

REPORT INFORMATION
  Report Type: 
  Country: None (occurrence: None)
  Receive Date: 20110711
  Receipt Date: 20110707
  Transmission Date: 20111222
  Serious: Yes (Other)
  Sender: FDA-Public Use
  Company Number: US-ACTELION-A-NJ2011-43625

PATIENT

DRUGS (1)
  1. TRACLEER [Suspect]
     Indication: PULMONARY ARTERIAL HYPERTENSION
     Dosage: 125 MG, BID
     Route: 048
     Dates: start: 20080123

REACTIONS (7)
  - LUNG NEOPLASM MALIGNANT [None]
  - FUNGAL INFECTION [None]
  - MALAISE [None]
  - NON-CARDIAC CHEST PAIN [None]
  - CHEST DISCOMFORT [None]
  - CHEMOTHERAPY [None]
  - GASTROINTESTINAL TUBE INSERTION [None]
